FAERS Safety Report 8836080 (Version 2)
Quarter: 2013Q4

REPORT INFORMATION
  Report Type: Report from Study
  Country: GB (occurrence: GB)
  Receive Date: 20121011
  Receipt Date: 20131009
  Transmission Date: 20140711
  Serious: Yes (Other)
  Sender: FDA-Public Use
  Company Number: GB-UCBSA-068293

PATIENT
  Age: 44 Year
  Sex: Female
  Weight: 115 kg

DRUGS (2)
  1. CERTOLIZUMAB PEGOL [Suspect]
     Indication: RHEUMATOID ARTHRITIS
     Route: 058
     Dates: start: 20111019, end: 20120815
  2. METHOTREXATE [Concomitant]

REACTIONS (1)
  - Endometrial adenocarcinoma [Recovered/Resolved]
